FAERS Safety Report 10129874 (Version 2)
Quarter: 2015Q1

REPORT INFORMATION
  Report Type: Other
  Country: US (occurrence: US)
  Receive Date: 20140428
  Receipt Date: 20150224
  Transmission Date: 20150720
  Serious: Yes (Hospitalization, Other)
  Sender: FDA-Public Use
  Company Number: US-GSKPPD-2014GSK035846

PATIENT
  Age: 45 Year
  Sex: Male

DRUGS (6)
  1. DIPYRIDAMOLE. [Concomitant]
     Active Substance: DIPYRIDAMOLE
     Dosage: ONE CAPSULE BID
  2. ACETYLSALICYLIC ACID [Concomitant]
     Active Substance: ASPIRIN
     Dosage: ONE CAPSULE BID
  3. AVANDIA [Suspect]
     Active Substance: ROSIGLITAZONE MALEATE
     Indication: DIABETES MELLITUS
     Dosage: AVANDIA WAS NOT LISTED AMONG THE PATIENTS RECORDS REVIEWED
     Route: 048
  4. ATENOLOL. [Concomitant]
     Active Substance: ATENOLOL
     Route: 048
  5. LOSARTAN [Concomitant]
     Active Substance: LOSARTAN
     Route: 048
  6. CLONIDINE. [Concomitant]
     Active Substance: CLONIDINE
     Route: 048

REACTIONS (1)
  - Cerebrovascular accident [Recovered/Resolved]

NARRATIVE: CASE EVENT DATE: 20080108
